FAERS Safety Report 21063618 (Version 4)
Quarter: 2022Q3

REPORT INFORMATION
  Report Type: Report from Study
  Country: US (occurrence: US)
  Receive Date: 20220711
  Receipt Date: 20220826
  Transmission Date: 20221027
  Serious: No
  Sender: FDA-Public Use
  Company Number: US-NOVARTISTESTPH-NVSC2022US156375

PATIENT
  Sex: Female

DRUGS (1)
  1. KESIMPTA [Suspect]
     Active Substance: OFATUMUMAB
     Indication: Multiple sclerosis
     Dosage: UNK
     Route: 058

REACTIONS (9)
  - Respiratory disorder [Unknown]
  - Oropharyngeal pain [Unknown]
  - Bacterial infection [Unknown]
  - Asthenia [Unknown]
  - Photophobia [Unknown]
  - Eczema [Unknown]
  - Depression [Unknown]
  - Headache [Unknown]
  - Nasopharyngitis [Unknown]
